FAERS Safety Report 17718974 (Version 1)
Quarter: 2020Q2

REPORT INFORMATION
  Report Type: Spontaneous
  Country: FR (occurrence: FR)
  Receive Date: 20200428
  Receipt Date: 20200428
  Transmission Date: 20200714
  Serious: Yes (Other)
  Sender: FDA-Public Use
  Company Number: FR-009507513-2004FRA006776

PATIENT
  Age: 9 Year
  Sex: Female
  Weight: 39 kg

DRUGS (9)
  1. PIPERACILLIN AND TAZOBACTAM [Concomitant]
     Active Substance: PIPERACILLIN SODIUM\TAZOBACTAM SODIUM
  2. PARACETAMOL BRAUN [Concomitant]
     Active Substance: ACETAMINOPHEN
     Dosage: UNK
  3. TIORFAN [Concomitant]
     Active Substance: RACECADOTRIL
  4. NOXAFIL [Suspect]
     Active Substance: POSACONAZOLE
     Indication: FUNGAL INFECTION
     Dosage: 200 MILLIGRAM; FORMULATION: SOLUTION TO DILUTE FOR INFUSION
     Route: 041
     Dates: start: 20200327, end: 20200331
  5. NICARDIPINE HYDROCHLORIDE. [Concomitant]
     Active Substance: NICARDIPINE HYDROCHLORIDE
  6. PLITICAN [Concomitant]
     Active Substance: ALIZAPRIDE HYDROCHLORIDE
  7. ONDANSETRON ACCORD [Concomitant]
     Active Substance: ONDANSETRON
     Dosage: UNK
  8. VANCOMYCIN MYLAN [Concomitant]
     Active Substance: VANCOMYCIN
  9. ZOVIRAX [Concomitant]
     Active Substance: ACYCLOVIR

REACTIONS (2)
  - Haematuria [Recovered/Resolved]
  - Red blood cell schistocytes present [Recovered/Resolved]

NARRATIVE: CASE EVENT DATE: 20200328
